FAERS Safety Report 16264511 (Version 1)
Quarter: 2019Q2

REPORT INFORMATION
  Report Type: Spontaneous
  Country: DE (occurrence: DE)
  Receive Date: 20190502
  Receipt Date: 20190502
  Transmission Date: 20190711
  Serious: Yes (Other)
  Sender: FDA-Public Use
  Company Number: DE-ASTRAZENECA-2019SE63716

PATIENT
  Sex: Male

DRUGS (1)
  1. TAGRISSO [Suspect]
     Active Substance: OSIMERTINIB
     Indication: LUNG ADENOCARCINOMA STAGE 0
     Route: 048

REACTIONS (2)
  - Cerebellar tumour [Unknown]
  - Neoplasm [Unknown]
